FAERS Safety Report 5593056-4 (Version None)
Quarter: 2008Q1

REPORT INFORMATION
  Report Type: 
  Country: None (occurrence: None)
  Receive Date: 20080116
  Receipt Date: 20080112
  Transmission Date: 20080703
  Serious: Yes (Other)
  Sender: FDA-Public Use
  Company Number: DE-JNJFOC-20080102834

PATIENT
  Sex: Female
  Weight: 140 kg

DRUGS (1)
  1. RISPERDAL [Suspect]
     Indication: DRUG USE FOR UNKNOWN INDICATION
     Route: 048

REACTIONS (4)
  - BRADYCARDIA [None]
  - HYPOTHERMIA [None]
  - RESPIRATORY ACIDOSIS [None]
  - SUICIDE ATTEMPT [None]
